FAERS Safety Report 9144732 (Version 3)
Quarter: 2014Q1

REPORT INFORMATION
  Report Type: Spontaneous
  Country: US (occurrence: US)
  Receive Date: 20130306
  Receipt Date: 20140121
  Transmission Date: 20141002
  Serious: Yes (Hospitalization, Other)
  Sender: FDA-Public Use
  Company Number: US-009507513-1203USA02841

PATIENT
  Sex: Female
  Weight: 55.34 kg

DRUGS (2)
  1. FOSAMAX [Suspect]
     Indication: OSTEOPOROSIS
     Dosage: 70 MG, UNK
     Route: 048
     Dates: start: 20010816, end: 200808
  2. HORMONES (UNSPECIFIED) [Concomitant]
     Dosage: UNK
     Dates: start: 1990, end: 2005

REACTIONS (29)
  - Femur fracture [Unknown]
  - Transfusion [Unknown]
  - Femur fracture [Unknown]
  - Intramedullary rod insertion [Unknown]
  - Femur fracture [Unknown]
  - Femur fracture [Unknown]
  - Tonsillectomy [Unknown]
  - Appendicectomy [Unknown]
  - Osteopenia [Unknown]
  - Fall [Unknown]
  - Uterine dilation and curettage [Unknown]
  - Venous ligation [Unknown]
  - Catheterisation cardiac [Unknown]
  - Spinal compression fracture [Unknown]
  - Vulvovaginal dryness [Unknown]
  - Vitamin D deficiency [Unknown]
  - Sensory disturbance [Recovering/Resolving]
  - Diverticulum intestinal [Unknown]
  - Haemorrhoids [Unknown]
  - Trigger finger [Recovering/Resolving]
  - Glucose tolerance impaired [Unknown]
  - Haematochezia [Unknown]
  - Osteoarthritis [Unknown]
  - Carpal tunnel decompression [Unknown]
  - Bronchitis [Unknown]
  - Low turnover osteopathy [Unknown]
  - Spinal osteoarthritis [Unknown]
  - Arthritis [Unknown]
  - Skeletal injury [Unknown]
